FAERS Safety Report 6486629-8 (Version None)
Quarter: 2009Q4

REPORT INFORMATION
  Report Type: 
  Country: None (occurrence: None)
  Receive Date: 20091210
  Receipt Date: 20090819
  Transmission Date: 20100525
  Serious: No
  Sender: FDA-Public Use
  Company Number: US-AMGEN-KDL358700

PATIENT
  Sex: Female

DRUGS (2)
  1. ENBREL [Suspect]
     Indication: PSORIATIC ARTHROPATHY
     Route: 058
     Dates: start: 20070301, end: 20090720
  2. METHOTREXATE [Concomitant]
     Route: 048
     Dates: start: 20060301

REACTIONS (7)
  - ASTHMA [None]
  - INJECTION SITE ERYTHEMA [None]
  - INJECTION SITE REACTION [None]
  - MOBILITY DECREASED [None]
  - NAUSEA [None]
  - SINUSITIS [None]
  - WEIGHT INCREASED [None]
